FAERS Safety Report 23507364 (Version 2)
Quarter: 2024Q1

REPORT INFORMATION
  Report Type: Report from Study
  Country: FI (occurrence: FI)
  Receive Date: 20240209
  Receipt Date: 20240221
  Transmission Date: 20240409
  Serious: Yes (Hospitalization, Other)
  Sender: FDA-Public Use
  Company Number: FI-BAXTER-2024BAX011626

PATIENT
  Age: 70 Year
  Sex: Female
  Weight: 96 kg

DRUGS (58)
  1. IFOSFAMIDE [Suspect]
     Active Substance: IFOSFAMIDE
     Indication: Diffuse large B-cell lymphoma stage II
     Dosage: UNK, CYCLE 1 INFUSION, AS A PART OF R-ICE REGIMEN
     Route: 042
     Dates: start: 20231213, end: 20231214
  2. IFOSFAMIDE [Suspect]
     Active Substance: IFOSFAMIDE
     Dosage: UNK, CYCLE 2, INFUSION
     Route: 042
     Dates: start: 20240103, end: 20240104
  3. IFOSFAMIDE [Suspect]
     Active Substance: IFOSFAMIDE
     Dosage: UNK, CYCLE 3, INFUSION
     Route: 042
     Dates: start: 20240124, end: 20240125
  4. CYCLOPHOSPHAMIDE [Suspect]
     Active Substance: CYCLOPHOSPHAMIDE
     Dosage: UNK
     Route: 065
     Dates: start: 20230928, end: 20231109
  5. DOXORUBICIN [Suspect]
     Active Substance: DOXORUBICIN
     Dosage: UNK
     Route: 065
     Dates: start: 20230928, end: 20231109
  6. EPCORITAMAB [Suspect]
     Active Substance: EPCORITAMAB
     Indication: Diffuse large B-cell lymphoma stage II
     Dosage: 0.16 MG, C1D1 PRIMING DOSE
     Route: 058
     Dates: start: 20231214, end: 20231214
  7. EPCORITAMAB [Suspect]
     Active Substance: EPCORITAMAB
     Dosage: 0.8 MG, C1D8 INTERMEDIATE DOSE
     Route: 058
     Dates: start: 20231221, end: 20231221
  8. EPCORITAMAB [Suspect]
     Active Substance: EPCORITAMAB
     Dosage: 48 MG, C1D15 FULL DOSE, ONGOING
     Route: 058
     Dates: start: 20231228
  9. EPCORITAMAB [Suspect]
     Active Substance: EPCORITAMAB
     Dosage: 48 MG, C2D1, LATEST DOSE ADMINISTERED
     Route: 065
     Dates: start: 20240104
  10. EPCORITAMAB [Suspect]
     Active Substance: EPCORITAMAB
     Dosage: 48 MG
     Route: 065
     Dates: start: 20240111
  11. EPCORITAMAB [Suspect]
     Active Substance: EPCORITAMAB
     Dosage: 48 MG, C2D15
     Route: 065
     Dates: start: 20240118
  12. EPCORITAMAB [Suspect]
     Active Substance: EPCORITAMAB
     Dosage: 48 MG, C3D1, LATEST DOSE ADMINISTERED
     Route: 065
     Dates: start: 20240125
  13. CARBOPLATIN [Suspect]
     Active Substance: CARBOPLATIN
     Indication: Diffuse large B-cell lymphoma stage II
     Dosage: 5 AUC, CYCLE 1, ONWARDS, ONGOING
     Route: 042
     Dates: start: 20231213
  14. ETOPOSIDE [Suspect]
     Active Substance: ETOPOSIDE
     Indication: Diffuse large B-cell lymphoma stage II
     Dosage: UNK, CYCLE 1, AS A PART OF R-ICE REGIMEN
     Route: 042
     Dates: start: 20231212, end: 20231214
  15. ETOPOSIDE [Suspect]
     Active Substance: ETOPOSIDE
     Dosage: UNK, CYCLE 2, AS A PART OF R-ICE REGIMEN
     Route: 042
     Dates: start: 20240102, end: 20240104
  16. ETOPOSIDE [Suspect]
     Active Substance: ETOPOSIDE
     Dosage: UNK, CYCLE 3, AS A PART OF R-ICE REGIMEN
     Route: 042
     Dates: start: 20240123, end: 20240125
  17. RITUXIMAB [Suspect]
     Active Substance: RITUXIMAB
     Indication: Diffuse large B-cell lymphoma stage II
     Dosage: UNK, CYCLE 1, AS A PART OF R-ICE REGIMEN
     Route: 042
     Dates: start: 20231212
  18. HICET [Concomitant]
     Indication: Premedication
     Dosage: 10 MG
     Route: 048
     Dates: start: 20240104, end: 20240104
  19. HICET [Concomitant]
     Dosage: 10 MG
     Route: 048
     Dates: start: 20240111
  20. HICET [Concomitant]
     Dosage: 10 MG
     Route: 048
     Dates: start: 20240118
  21. HICET [Concomitant]
     Dosage: 10 MG
     Route: 048
     Dates: start: 20240125
  22. HICET [Concomitant]
     Dosage: 10 MG
     Route: 048
     Dates: start: 20240201
  23. ACETAMINOPHEN [Concomitant]
     Active Substance: ACETAMINOPHEN
     Indication: Premedication
     Dosage: 1 G
     Route: 048
     Dates: start: 20240104, end: 20240104
  24. ACETAMINOPHEN [Concomitant]
     Active Substance: ACETAMINOPHEN
     Dosage: 1 G
     Route: 048
     Dates: start: 20240111
  25. ACETAMINOPHEN [Concomitant]
     Active Substance: ACETAMINOPHEN
     Dosage: 1 G
     Route: 048
     Dates: start: 20240118
  26. ACETAMINOPHEN [Concomitant]
     Active Substance: ACETAMINOPHEN
     Dosage: 1 G
     Route: 048
     Dates: start: 20240125
  27. ACETAMINOPHEN [Concomitant]
     Active Substance: ACETAMINOPHEN
     Dosage: 1 G
     Route: 048
     Dates: start: 20240201
  28. HYDROCORTISONE [Concomitant]
     Active Substance: HYDROCORTISONE
     Dosage: UNK, ONGOING
     Route: 065
     Dates: start: 20231218
  29. PANTOPRAZOLE SODIUM [Concomitant]
     Active Substance: PANTOPRAZOLE SODIUM
     Dosage: UNK, ONGOING
     Route: 065
     Dates: start: 20230925
  30. LEVOTHYROXINE [Concomitant]
     Active Substance: LEVOTHYROXINE\LEVOTHYROXINE SODIUM
     Dosage: UNK, ONGOING
     Route: 065
     Dates: start: 20201109
  31. ENOXAPARIN SODIUM [Concomitant]
     Active Substance: ENOXAPARIN SODIUM
     Dosage: UNK, ONGOING
     Route: 065
     Dates: start: 20230925
  32. OXAZEPAM [Concomitant]
     Active Substance: OXAZEPAM
     Dosage: UNK, ONGOING
     Route: 065
     Dates: start: 20231204
  33. FUROSEMIDE [Concomitant]
     Active Substance: FUROSEMIDE
     Dosage: UNK, ONGOING
     Route: 065
     Dates: start: 20231212
  34. PEGFILGRASTIM [Concomitant]
     Active Substance: PEGFILGRASTIM
     Dosage: UNK, ONGOING
     Route: 065
     Dates: start: 20230929
  35. ARANESP [Concomitant]
     Active Substance: DARBEPOETIN ALFA
     Dosage: UNK, ONGOING
     Route: 065
     Dates: start: 20231222
  36. PANADOL [Concomitant]
     Active Substance: ACETAMINOPHEN
     Dosage: UNK, ONGOING
     Route: 065
     Dates: start: 20230929
  37. DIFLUCAN [Concomitant]
     Active Substance: FLUCONAZOLE
     Dosage: UNK, ONGOING
     Route: 065
     Dates: start: 20231222
  38. NYSTATIN [Concomitant]
     Active Substance: NYSTATIN
     Dosage: UNK, ONGOING
     Route: 065
     Dates: start: 20231222
  39. CEFUROXIME [Concomitant]
     Active Substance: CEFUROXIME
     Dosage: UNK
     Route: 065
     Dates: start: 20231228, end: 20231231
  40. IBUPROFEN [Concomitant]
     Active Substance: IBUPROFEN
     Dosage: UNK
     Route: 065
     Dates: start: 20231229, end: 20231230
  41. FUROSEMIDE [Concomitant]
     Active Substance: FUROSEMIDE
     Dosage: UNK, ONGOING
     Route: 065
     Dates: start: 20230925
  42. ONDANSETRON [Concomitant]
     Active Substance: ONDANSETRON
     Dosage: UNK, ONGOING
     Route: 065
     Dates: start: 20230925
  43. POLYETHYLENE GLYCOL 4000 [Concomitant]
     Active Substance: POLYETHYLENE GLYCOL 4000
     Dosage: UNK, ONGOING
     Route: 065
     Dates: start: 20230929
  44. Beclomet [Concomitant]
     Dosage: UNK, ONGOING
     Route: 065
     Dates: start: 20201209
  45. PRIMPERAN [Concomitant]
     Active Substance: METOCLOPRAMIDE HYDROCHLORIDE
     Dosage: UNK, ONGOING
     Route: 065
     Dates: start: 20230925
  46. CEPHALEXIN [Concomitant]
     Active Substance: CEPHALEXIN
     Dosage: UNK
     Route: 065
     Dates: start: 20231231, end: 20240104
  47. SODIUM CHLORIDE [Concomitant]
     Active Substance: SODIUM CHLORIDE
     Dosage: UNK
     Route: 065
     Dates: start: 20240102, end: 20240104
  48. ELECTROLYTES NOS [Concomitant]
     Active Substance: ELECTROLYTES NOS
     Dosage: UNK
     Route: 065
     Dates: start: 20231228, end: 20231229
  49. DEXAMETHASONE [Concomitant]
     Active Substance: DEXAMETHASONE
     Dosage: 7.5 MG
     Route: 048
     Dates: start: 20231212
  50. DEXAMETHASONE [Concomitant]
     Active Substance: DEXAMETHASONE
     Dosage: 20 MG
     Route: 048
     Dates: start: 20231213
  51. DEXAMETHASONE [Concomitant]
     Active Substance: DEXAMETHASONE
     Dosage: 7.5 MG
     Route: 048
     Dates: start: 20240102
  52. DEXAMETHASONE [Concomitant]
     Active Substance: DEXAMETHASONE
     Dosage: 20 MG
     Route: 048
     Dates: start: 20240103
  53. PREDNISOLONE [Concomitant]
     Active Substance: PREDNISOLONE
     Dosage: 100 MG
     Route: 048
     Dates: start: 20231221, end: 20231224
  54. PREDNISOLONE [Concomitant]
     Active Substance: PREDNISOLONE
     Dosage: 100 MG
     Route: 048
     Dates: start: 20231228, end: 20231231
  55. PREDNISOLONE [Concomitant]
     Active Substance: PREDNISOLONE
     Dosage: 100 MG
     Route: 048
     Dates: start: 20240104, end: 20240107
  56. POTASSIUM CHLORIDE [Concomitant]
     Active Substance: POTASSIUM CHLORIDE
     Dosage: UNK, ONGOING
     Route: 065
     Dates: start: 20230928
  57. ACLOVIR [Concomitant]
     Dosage: UNK
     Route: 065
     Dates: start: 20240111, end: 20240117
  58. ALOXI [Concomitant]
     Active Substance: PALONOSETRON HYDROCHLORIDE
     Dosage: UNK
     Route: 065
     Dates: start: 20240125, end: 20240125

REACTIONS (2)
  - Cytokine release syndrome [Recovered/Resolved]
  - Neutropenic infection [Recovered/Resolved]

NARRATIVE: CASE EVENT DATE: 20240111
